FAERS Safety Report 4632187-X (Version None)
Quarter: 2005Q2

REPORT INFORMATION
  Report Type: 
  Country: None (occurrence: None)
  Receive Date: 20050331
  Receipt Date: 20040805
  Transmission Date: 20051028
  Serious: Yes (Other)
  Sender: FDA-Public Use
  Company Number: 200413855BCC

PATIENT
  Sex: Female
  Weight: 63.5036 kg

DRUGS (5)
  1. ALEVE [Suspect]
     Indication: PAIN
     Dosage: 440 MG QD ORAL
     Route: 048
  2. SYNTHROID [Concomitant]
  3. PREMARIN [Concomitant]
  4. VITAMIN E [Concomitant]
  5. ICAPS [Concomitant]

REACTIONS (2)
  - ABDOMINAL PAIN UPPER [None]
  - ULCER HAEMORRHAGE [None]
